FAERS Safety Report 6382596-6 (Version None)
Quarter: 2009Q3

REPORT INFORMATION
  Report Type: 
  Country: None (occurrence: None)
  Receive Date: 20090930
  Receipt Date: 20090924
  Transmission Date: 20100115
  Serious: Yes (Death)
  Sender: FDA-Public Use
  Company Number: B0595435A

PATIENT
  Age: 60 Year
  Sex: Female

DRUGS (10)
  1. ZOFRAN [Suspect]
     Indication: PROPHYLAXIS OF NAUSEA AND VOMITING
     Dosage: 4MG PER DAY
     Route: 042
     Dates: start: 20090323, end: 20090325
  2. PRIMPERAN [Suspect]
     Indication: NAUSEA
     Route: 042
     Dates: start: 20090324, end: 20090325
  3. FENTANEST [Suspect]
     Route: 042
     Dates: start: 20090323, end: 20090323
  4. ETOMIDATE [Suspect]
     Route: 042
     Dates: start: 20090323, end: 20090323
  5. PROPOFOL [Suspect]
     Route: 042
     Dates: start: 20090323, end: 20090323
  6. ATROPINA [Suspect]
     Route: 065
     Dates: start: 20090323, end: 20090323
  7. OMEPRAZOLE [Concomitant]
     Dates: start: 20090322
  8. CLEXANE [Concomitant]
     Dosage: 20MG PER DAY
     Route: 058
     Dates: start: 20090322
  9. DEXAMETASONA [Concomitant]
     Dosage: 4MG PER DAY
     Dates: start: 20090322
  10. GLICLAZIDA [Concomitant]
     Dosage: 40MG PER DAY
     Route: 048

REACTIONS (1)
  - NEUROLEPTIC MALIGNANT SYNDROME [None]
